FAERS Safety Report 4911742-3 (Version None)
Quarter: 2006Q1

REPORT INFORMATION
  Report Type: 
  Country: None (occurrence: None)
  Receive Date: 20060215
  Receipt Date: 20060207
  Transmission Date: 20060701
  Serious: Yes (Hospitalization)
  Sender: FDA-Public Use
  Company Number: JP-SP-2006-00286

PATIENT
  Age: 69 Year
  Sex: Male

DRUGS (1)
  1. IMMUCYST [Suspect]
     Route: 043

REACTIONS (2)
  - EPIDIDYMITIS [None]
  - ORCHITIS [None]
